FAERS Safety Report 8933422 (Version 1)
Quarter: 2012Q4

REPORT INFORMATION
  Report Type: 
  Country: BR (occurrence: BR)
  Receive Date: 20121128
  Receipt Date: 20121128
  Transmission Date: 20130627
  Serious: Yes (Other)
  Sender: FDA-Public Use
  Company Number: BR-PFIZER INC-2012293893

PATIENT
  Age: 38 Year
  Sex: Male

DRUGS (1)
  1. CELEBRA [Suspect]
     Indication: INFLAMMATION
     Dosage: 200 mg, every 12 hours
     Route: 048
     Dates: end: 20121116

REACTIONS (1)
  - Arrhythmia [Not Recovered/Not Resolved]
